FAERS Safety Report 10948898 (Version 3)
Quarter: 2015Q2

REPORT INFORMATION
  Report Type: Spontaneous
  Country: US (occurrence: US)
  Receive Date: 20150324
  Receipt Date: 20150529
  Transmission Date: 20150821
  Serious: Yes (Other)
  Sender: FDA-Public Use
  Company Number: US-PFIZER INC-2015101083

PATIENT
  Age: 71 Year
  Sex: Female
  Weight: 74 kg

DRUGS (5)
  1. IBRANCE [Suspect]
     Active Substance: PALBOCICLIB
     Dosage: 125 MG, CYCLIC (3 WEEKS ON 1 WEEKS OFF)
     Dates: start: 20150415
  2. ASA [Concomitant]
     Active Substance: ASPIRIN
     Dosage: 81 MG, DAILY
     Dates: start: 20150304, end: 20150401
  3. FEMARA [Concomitant]
     Active Substance: LETROZOLE
     Indication: BREAST CANCER
     Dosage: 2.5 MG, 1X/DAY
     Route: 048
     Dates: start: 20150304
  4. FISH OIL [Concomitant]
     Active Substance: FISH OIL
  5. IBRANCE [Suspect]
     Active Substance: PALBOCICLIB
     Indication: BREAST CANCER METASTATIC
     Dosage: 125 MG ONCE A DAY CYCLIC (21 DAY CONSECUTIVELY FOLLOWED BY 7 DAYS OFF)
     Route: 048
     Dates: start: 20150304, end: 20150401

REACTIONS (8)
  - Neutropenia [Recovering/Resolving]
  - Breast cancer metastatic [Unknown]
  - Nasopharyngitis [Unknown]
  - Thrombocytopenia [Unknown]
  - Pleural effusion [Recovered/Resolved]
  - Lung disorder [Recovered/Resolved]
  - Disease progression [Unknown]
  - Fatigue [Unknown]

NARRATIVE: CASE EVENT DATE: 201503
